FAERS Safety Report 9270085 (Version 1)
Quarter: 2013Q2

REPORT INFORMATION
  Report Type: Spontaneous
  Country: GB (occurrence: GB)
  Receive Date: 20130503
  Receipt Date: 20130503
  Transmission Date: 20140414
  Serious: Yes (Other)
  Sender: FDA-Public Use
  Company Number: GB-TEVA-402147ISR

PATIENT
  Age: 60 Year
  Sex: Female

DRUGS (2)
  1. DIAZEPAM [Suspect]
     Indication: MUSCULOSKELETAL DISCOMFORT
     Dosage: NOT STATED
     Route: 065
  2. PROZAC [Concomitant]

REACTIONS (6)
  - Agoraphobia [Unknown]
  - Anxiety [Unknown]
  - Agitation [Unknown]
  - Feeling abnormal [Unknown]
  - Decreased appetite [Recovered/Resolved]
  - Withdrawal syndrome [Unknown]
